FAERS Safety Report 23448088 (Version 1)
Quarter: 2024Q1

REPORT INFORMATION
  Report Type: Spontaneous
  Country: US (occurrence: US)
  Receive Date: 20240126
  Receipt Date: 20240126
  Transmission Date: 20240409
  Serious: Yes (Other)
  Sender: FDA-Public Use
  Company Number: US-PFIZER INC-202400023630

PATIENT
  Age: 67 Year
  Sex: Female

DRUGS (3)
  1. PAXLOVID [Interacting]
     Active Substance: NIRMATRELVIR\RITONAVIR
     Indication: Respiratory disorder
     Dosage: [NIRMATRELVIR 300 MG]/[RITONAVIR 100 MG]; 2X/DAY
     Dates: start: 20240104, end: 20240109
  2. XULTOPHY 100/3.6 [Interacting]
     Active Substance: INSULIN DEGLUDEC\LIRAGLUTIDE
     Indication: Blood insulin abnormal
     Dosage: 100 UNITS/3.6 MG/ML, SET THE PEN TO 22, INJECTION
  3. ROSUVASTATIN [Concomitant]
     Active Substance: ROSUVASTATIN
     Dosage: STOP THIS FOR OVER 10 DAYS DUE TO TAKING PAXLOVID

REACTIONS (24)
  - Drug interaction [Not Recovered/Not Resolved]
  - Blood glucose increased [Not Recovered/Not Resolved]
  - Immunosuppression [Unknown]
  - Illness [Unknown]
  - Pyrexia [Unknown]
  - Pain [Unknown]
  - Pain in extremity [Unknown]
  - Myalgia [Unknown]
  - Gait inability [Unknown]
  - Fatigue [Not Recovered/Not Resolved]
  - Upper respiratory tract infection [Not Recovered/Not Resolved]
  - Dyspnoea [Not Recovered/Not Resolved]
  - Lung disorder [Not Recovered/Not Resolved]
  - Increased upper airway secretion [Unknown]
  - Asthenia [Not Recovered/Not Resolved]
  - Toxicity to various agents [Unknown]
  - Skin discolouration [Unknown]
  - Headache [Unknown]
  - Anosmia [Unknown]
  - Ageusia [Unknown]
  - Oral discomfort [Unknown]
  - Thinking abnormal [Unknown]
  - Off label use [Unknown]
  - Drug ineffective for unapproved indication [Unknown]

NARRATIVE: CASE EVENT DATE: 20240101
